FAERS Safety Report 21898549 (Version 1)
Quarter: 2023Q1

REPORT INFORMATION
  Report Type: Spontaneous
  Country: US (occurrence: None)
  Receive Date: 20230121
  Receipt Date: 20230121
  Transmission Date: 20230417
  Serious: No
  Sender: FDA-Public Use
  Company Number: None

PATIENT
  Age: 38 Year
  Sex: Male
  Weight: 69.75 kg

DRUGS (2)
  1. MYRBETRIQ [Suspect]
     Active Substance: MIRABEGRON
     Indication: Urinary incontinence
     Dates: start: 20220201, end: 20220404
  2. Gemtesa 75 MG Oral Tablet - 1 Tablet daily [Concomitant]

REACTIONS (3)
  - Testicular pain [None]
  - Testicular disorder [None]
  - Hyperaesthesia [None]

NARRATIVE: CASE EVENT DATE: 20220403
